FAERS Safety Report 9950030 (Version 1)
Quarter: 2014Q1

REPORT INFORMATION
  Report Type: Spontaneous
  Country: US (occurrence: US)
  Receive Date: 20140304
  Receipt Date: 20140304
  Transmission Date: 20141002
  Serious: No
  Sender: FDA-Public Use
  Company Number: US-ABBVIE-13P-163-1070312-00

PATIENT
  Age: 73 Year
  Sex: Female
  Weight: 81.72 kg

DRUGS (13)
  1. HUMIRA [Suspect]
     Indication: RHEUMATOID ARTHRITIS
     Dates: start: 200702
  2. METHOTREXATE [Concomitant]
     Indication: RHEUMATOID ARTHRITIS
  3. MELOXICAM [Concomitant]
     Indication: RHEUMATOID ARTHRITIS
  4. FOLIC ACID [Concomitant]
     Indication: PROPHYLAXIS
  5. ENALAPRIL [Concomitant]
     Indication: BLOOD PRESSURE
  6. LOSARTAN [Concomitant]
     Indication: BLOOD PRESSURE
  7. LEVOTHYROXINE [Concomitant]
     Indication: THYROID DISORDER
  8. HYDROCHLOROTHIAZIDE [Concomitant]
     Indication: FLUID RETENTION
  9. OMEPRAZOLE [Concomitant]
     Indication: GASTROOESOPHAGEAL REFLUX DISEASE
  10. VITAMIN B12 [Concomitant]
     Indication: ROUTINE HEALTH MAINTENANCE
  11. VITAMIN D [Concomitant]
     Indication: ROUTINE HEALTH MAINTENANCE
  12. ASPIRIN [Concomitant]
     Indication: UNEVALUABLE EVENT
  13. ALLEGRA [Concomitant]
     Indication: HYPERSENSITIVITY

REACTIONS (4)
  - Osteoarthritis [Not Recovered/Not Resolved]
  - Injection site pain [Not Recovered/Not Resolved]
  - Headache [Recovered/Resolved]
  - Pain [Recovered/Resolved]
